FAERS Safety Report 7573441-1 (Version None)
Quarter: 2011Q2

REPORT INFORMATION
  Report Type: 
  Country: None (occurrence: None)
  Receive Date: 20110627
  Receipt Date: 20110623
  Transmission Date: 20111010
  Serious: Yes (Death)
  Sender: FDA-Public Use
  Company Number: DE-SANOFI-AVENTIS-2011SA039960

PATIENT
  Age: 78 Year
  Sex: Male

DRUGS (4)
  1. ENOXAPARIN SODIUM [Suspect]
     Indication: THROMBOSIS PROPHYLAXIS
     Route: 065
     Dates: start: 20110601, end: 20110601
  2. ENOXAPARIN SODIUM [Suspect]
     Route: 065
     Dates: start: 20110601, end: 20110601
  3. PLAVIX [Concomitant]
     Dates: end: 20110601
  4. ACETYLSALICYLIC ACID SRT [Concomitant]
     Dates: end: 20110601

REACTIONS (1)
  - DEATH [None]
